FAERS Safety Report 7298923-1 (Version None)
Quarter: 2011Q1

REPORT INFORMATION
  Report Type: 
  Country: None (occurrence: None)
  Receive Date: 20110217
  Receipt Date: 20110208
  Transmission Date: 20110831
  Serious: Yes (Other)
  Sender: FDA-Public Use
  Company Number: PHHY2010US84392

PATIENT
  Sex: Female
  Weight: 167 kg

DRUGS (1)
  1. EXJADE [Suspect]
     Indication: SICKLE CELL ANAEMIA
     Dosage: 500 MG, TID
     Route: 048
     Dates: start: 20100825

REACTIONS (2)
  - RENAL PAIN [None]
  - BACK PAIN [None]
